FAERS Safety Report 8563222-4 (Version None)
Quarter: 2012Q3

REPORT INFORMATION
  Report Type: 
  Country: None (occurrence: None)
  Receive Date: 20120802
  Receipt Date: 20120726
  Transmission Date: 20120928
  Serious: No
  Sender: FDA-Public Use
  Company Number: US-AMGEN-USASP2012029455

PATIENT
  Sex: Male

DRUGS (3)
  1. ENBREL [Suspect]
     Indication: PSORIATIC ARTHROPATHY
  2. ENBREL [Suspect]
     Indication: PSORIASIS
  3. ENBREL [Suspect]
     Indication: RHEUMATOID ARTHRITIS
     Dosage: 50 MG, QWK
     Dates: start: 20030510

REACTIONS (15)
  - PSORIASIS [None]
  - EYELID MARGIN CRUSTING [None]
  - FATIGUE [None]
  - HEADACHE [None]
  - RESTLESS LEGS SYNDROME [None]
  - INFLUENZA [None]
  - ASTHENOPIA [None]
  - EYE IRRITATION [None]
  - INJECTION SITE PAIN [None]
  - LACRIMATION INCREASED [None]
  - ARTHRALGIA [None]
  - WEIGHT DECREASED [None]
  - GAIT DISTURBANCE [None]
  - DRUG INEFFECTIVE [None]
  - INJECTION SITE ERYTHEMA [None]
